FAERS Safety Report 16483342 (Version 1)
Quarter: 2019Q2

REPORT INFORMATION
  Report Type: Spontaneous
  Country: US (occurrence: US)
  Receive Date: 20190515
  Receipt Date: 20190515
  Transmission Date: 20190711
  Serious: No
  Sender: FDA-Public Use
  Company Number: None

PATIENT
  Age: 61 Year
  Sex: Male

DRUGS (1)
  1. HEPARIN [Suspect]
     Active Substance: HEPARIN SODIUM
     Indication: DEEP VEIN THROMBOSIS
     Dosage: IU ONCE IV
     Route: 042
     Dates: start: 20190130, end: 20190201

REACTIONS (3)
  - Haemorrhage [None]
  - Haematoma [None]
  - Haemoglobin decreased [None]

NARRATIVE: CASE EVENT DATE: 20190201
